FAERS Safety Report 9440722 (Version 2)
Quarter: 2013Q3

REPORT INFORMATION
  Report Type: Spontaneous
  Country: SE (occurrence: SE)
  Receive Date: 20130805
  Receipt Date: 20130809
  Transmission Date: 20140515
  Serious: Yes (Other)
  Sender: FDA-Public Use
  Company Number: SE-ABBOTT-13X-150-1129232-00

PATIENT
  Age: 16 Year
  Sex: Female

DRUGS (3)
  1. ERGENYL [Suspect]
     Indication: CONVULSION
     Dosage: DAILY
     Route: 048
  2. OMEPRAZOLE [Concomitant]
     Indication: PRODUCT USED FOR UNKNOWN INDICATION
  3. DUROFERON [Concomitant]
     Indication: PRODUCT USED FOR UNKNOWN INDICATION

REACTIONS (4)
  - Convulsion [Unknown]
  - Drug ineffective [Unknown]
  - Medication residue present [Unknown]
  - Wrong technique in drug usage process [Unknown]
